FAERS Safety Report 9565231 (Version 2)
Quarter: 2013Q3

REPORT INFORMATION
  Report Type: Report from Study
  Country: BR (occurrence: BR)
  Receive Date: 20130930
  Receipt Date: 20130930
  Transmission Date: 20140515
  Serious: Yes (Other)
  Sender: FDA-Public Use
  Company Number: PHHY2012BR068324

PATIENT
  Sex: Female
  Weight: 65 kg

DRUGS (3)
  1. DIOVAN [Suspect]
     Indication: BLOOD PRESSURE ABNORMAL
     Dosage: 1 DF, (160 MG) QD
     Route: 048
     Dates: start: 201207
  2. EUTHYROX [Concomitant]
     Indication: HYPOTHYROIDISM
     Dosage: 1 DF, (75 UG) QD
  3. HIGROTON [Concomitant]
     Indication: POLYURIA
     Dosage: 1 DF, (25 MG) QD
     Route: 048

REACTIONS (23)
  - Epistaxis [Recovering/Resolving]
  - Blood pressure increased [Recovering/Resolving]
  - Wound [Recovering/Resolving]
  - Skin discolouration [Recovering/Resolving]
  - Nasal disorder [Recovered/Resolved]
  - Blood glucose increased [Unknown]
  - Formication [Not Recovered/Not Resolved]
  - Head discomfort [Not Recovered/Not Resolved]
  - Aphonia [Unknown]
  - Movement disorder [Unknown]
  - Pain in extremity [Recovered/Resolved]
  - Tachycardia [Unknown]
  - Nervousness [Unknown]
  - Chest pain [Recovering/Resolving]
  - Peripheral vascular disorder [Not Recovered/Not Resolved]
  - Peripheral coldness [Not Recovered/Not Resolved]
  - Malaise [Not Recovered/Not Resolved]
  - Muscle spasms [Not Recovered/Not Resolved]
  - Asthenia [Not Recovered/Not Resolved]
  - Dizziness [Not Recovered/Not Resolved]
  - Vertigo [Not Recovered/Not Resolved]
  - Blood pressure inadequately controlled [Not Recovered/Not Resolved]
  - Pruritus generalised [Recovering/Resolving]
